FAERS Safety Report 18333823 (Version 1)
Quarter: 2020Q3

REPORT INFORMATION
  Report Type: Spontaneous
  Country: US (occurrence: US)
  Receive Date: 20200930
  Receipt Date: 20200930
  Transmission Date: 20201103
  Serious: Yes (Other)
  Sender: FDA-Public Use
  Company Number: None

PATIENT
  Age: 77 Year
  Sex: Male
  Weight: 90 kg

DRUGS (3)
  1. PROLIA [Suspect]
     Active Substance: DENOSUMAB
     Indication: FRACTURE
     Dosage: ?          QUANTITY:1 INJECTION(S);?
     Route: 058
     Dates: start: 20200506
  2. CPAP [Concomitant]
     Active Substance: DEVICE
  3. OXYGEN CONCENTRATOR [Concomitant]

REACTIONS (1)
  - Tooth loss [None]

NARRATIVE: CASE EVENT DATE: 20200506
